FAERS Safety Report 16827100 (Version 1)
Quarter: 2019Q3

REPORT INFORMATION
  Report Type: Spontaneous
  Country: IN (occurrence: IN)
  Receive Date: 20190919
  Receipt Date: 20190919
  Transmission Date: 20191005
  Serious: Yes (Hospitalization)
  Sender: FDA-Public Use
  Company Number: IN-MYLANLABS-2019M1087742

PATIENT
  Age: 31 Year
  Sex: Female

DRUGS (2)
  1. BUPIVACAINE. [Suspect]
     Active Substance: BUPIVACAINE
     Indication: SPINAL ANAESTHESIA
     Dosage: INJECTED INTRATHECALLY AT L3-L4 INTERVERTEBRAL SPACE
     Route: 037
  2. FENTANYL. [Suspect]
     Active Substance: FENTANYL
     Indication: SPINAL ANAESTHESIA
     Dosage: INJECTED INTRATHECALLY AT L3-L4 INTERVERTEBRAL SPACE
     Route: 037

REACTIONS (4)
  - Myoclonus [Recovering/Resolving]
  - Hypotonia [Recovering/Resolving]
  - Condition aggravated [Recovering/Resolving]
  - Dural arteriovenous fistula [Recovering/Resolving]
